FAERS Safety Report 5868901-5 (Version None)
Quarter: 2008Q3

REPORT INFORMATION
  Report Type: 
  Country: None (occurrence: None)
  Receive Date: 20080902
  Receipt Date: 20080902
  Transmission Date: 20090109
  Serious: Yes (Disabling)
  Sender: FDA-Public Use
  Company Number: None

PATIENT
  Age: 9 Year
  Sex: Male
  Weight: 43 kg

DRUGS (1)
  1. CHLORAPREP [Suspect]
     Indication: TIBIAL TORSION
     Dosage: ONE TIME PREP TOP
     Route: 061
     Dates: start: 20080807, end: 20080807

REACTIONS (1)
  - RASH [None]
